FAERS Safety Report 12609678 (Version 1)
Quarter: 2016Q3

REPORT INFORMATION
  Report Type: Spontaneous
  Country: IT (occurrence: IT)
  Receive Date: 20160801
  Receipt Date: 20160801
  Transmission Date: 20161109
  Serious: Yes (Other)
  Sender: FDA-Public Use
  Company Number: PHHY2016IT103809

PATIENT
  Age: 62 Year
  Sex: Male
  Weight: 60 kg

DRUGS (1)
  1. GLIVEC [Suspect]
     Active Substance: IMATINIB MESYLATE
     Indication: CHRONIC MYELOID LEUKAEMIA
     Dosage: 400 MG, QD
     Route: 048
     Dates: start: 20000101, end: 20160708

REACTIONS (5)
  - Optic discs blurred [Unknown]
  - Visual impairment [Unknown]
  - Pupillary disorder [Unknown]
  - Papillary muscle haemorrhage [Unknown]
  - Papilloedema [Unknown]

NARRATIVE: CASE EVENT DATE: 20160626
